FAERS Safety Report 19399838 (Version 1)
Quarter: 2021Q2

REPORT INFORMATION
  Report Type: Spontaneous
  Country: US (occurrence: US)
  Receive Date: 20210610
  Receipt Date: 20210610
  Transmission Date: 20210717
  Serious: No
  Sender: FDA-Public Use
  Company Number: US-PFIZER INC-2021493144

PATIENT
  Age: 56 Year
  Sex: Female

DRUGS (11)
  1. ESCITALOPRAM OXALATE. [Concomitant]
     Active Substance: ESCITALOPRAM OXALATE
     Dosage: 10 MG
  2. CLOBEX [CLOBETASOL PROPIONATE] [Concomitant]
     Dosage: UNK
  3. MAGNESIUM [Concomitant]
     Active Substance: MAGNESIUM
     Dosage: 100 MG
  4. XELJANZ [Suspect]
     Active Substance: TOFACITINIB CITRATE
     Indication: PSORIATIC ARTHROPATHY
     Dosage: 5 MG, DAILY
     Dates: start: 20210215
  5. ALLEGRA D?12 HOUR [Concomitant]
     Active Substance: FEXOFENADINE HYDROCHLORIDE\PSEUDOEPHEDRINE HYDROCHLORIDE
     Dosage: UNK
  6. OMEPRAZOLE. [Concomitant]
     Active Substance: OMEPRAZOLE
     Dosage: UNK (OMEPRAZOLE 100 % POWDER)
  7. XIIDRA [Concomitant]
     Active Substance: LIFITEGRAST
     Dosage: UNK
  8. CALCIUM + D3 [CALCIUM;COLECALCIFEROL] [Concomitant]
     Active Substance: CALCIUM\CHOLECALCIFEROL
     Dosage: UNK (CALCIUM + D3 600 MG?500 TABLET ER)
  9. HYDROXYCHLOROQUINE SULFATE. [Concomitant]
     Active Substance: HYDROXYCHLOROQUINE SULFATE
     Dosage: UNK
  10. METHOTREXATE. [Concomitant]
     Active Substance: METHOTREXATE
     Dosage: 1 G (METHOTREXATE 1 G VIAL)
  11. IMVEXXY [Concomitant]
     Active Substance: ESTRADIOL
     Dosage: 10 UG (IMVEXXY 10 MCG INSERT)

REACTIONS (1)
  - Gastrooesophageal reflux disease [Unknown]
